FAERS Safety Report 6130603-8 (Version None)
Quarter: 2009Q1

REPORT INFORMATION
  Report Type: 
  Country: None (occurrence: None)
  Receive Date: 20090325
  Receipt Date: 20090316
  Transmission Date: 20090719
  Serious: Yes (Hospitalization, Other)
  Sender: FDA-Public Use
  Company Number: PHHY2009FR06962

PATIENT
  Sex: Male
  Weight: 95 kg

DRUGS (9)
  1. TEGRETOL [Suspect]
     Indication: BIPOLAR DISORDER
     Dosage: 1 DF, BID
     Route: 048
     Dates: start: 19930101
  2. TEGRETOL [Suspect]
     Indication: PSYCHOTIC DISORDER
  3. ZYPREXA [Suspect]
     Dosage: 5 MG/DAY
  4. ZYPREXA [Suspect]
     Dosage: 10 MG/DAY
  5. IMOVANE [Suspect]
     Dosage: 1 DF DAILY
  6. IMOVANE [Suspect]
     Dosage: 2 DF
  7. LYSANXIA [Concomitant]
  8. SELOKEN [Concomitant]
     Indication: HYPERTENSION
     Dosage: UNK
  9. APROVEL [Concomitant]
     Indication: HYPERTENSION
     Dosage: UNK

REACTIONS (4)
  - BALANCE DISORDER [None]
  - DIPLOPIA [None]
  - MENIERE'S DISEASE [None]
  - VERTIGO [None]
